FAERS Safety Report 6193716-0 (Version None)
Quarter: 2009Q2

REPORT INFORMATION
  Report Type: 
  Country: None (occurrence: None)
  Receive Date: 20090518
  Receipt Date: 20090511
  Transmission Date: 20091009
  Serious: Yes (Other)
  Sender: FDA-Public Use
  Company Number: US-ELI_LILLY_AND_COMPANY-US200905001891

PATIENT
  Sex: Female

DRUGS (7)
  1. HUMALOG MIX 75/25 [Suspect]
     Dosage: 41 U, 2/D
     Dates: start: 20010101
  2. HUMALOG MIX 75/25 [Suspect]
     Dosage: 45 U, 2/D
     Dates: start: 20010101
  3. BYETTA [Concomitant]
  4. LYRICA [Concomitant]
     Indication: NEUROPATHY PERIPHERAL
  5. GLUCOPHAGE [Concomitant]
  6. ATENOLOL [Concomitant]
  7. LASIX [Concomitant]

REACTIONS (4)
  - BLOOD GLUCOSE INCREASED [None]
  - NEUROPATHY PERIPHERAL [None]
  - RETINAL TEAR [None]
  - VISUAL ACUITY REDUCED [None]
